FAERS Safety Report 6599287-9 (Version None)
Quarter: 2010Q1

REPORT INFORMATION
  Report Type: 
  Country: None (occurrence: None)
  Receive Date: 20100217
  Receipt Date: 20100127
  Transmission Date: 20100710
  Serious: Yes (Death)
  Sender: FDA-Public Use
  Company Number: 2009AC000386

PATIENT
  Age: 82 Year
  Sex: Female

DRUGS (25)
  1. DIGOXIN [Suspect]
     Indication: ATRIAL FIBRILLATION
     Dosage: 0.125 MG; PO
     Route: 048
     Dates: start: 20070801
  2. CARDIZEM [Concomitant]
  3. COUMADIN [Concomitant]
  4. KAY CIEL DURA-TABS [Concomitant]
  5. LASIX [Concomitant]
  6. PREDNISONE [Concomitant]
  7. SULFACET [Concomitant]
  8. LIPITOR [Concomitant]
  9. CELEBREX [Concomitant]
  10. EVISTA [Concomitant]
  11. LEXAPRO [Concomitant]
  12. LEVOXYL [Concomitant]
  13. BETAPACE [Concomitant]
  14. LEVOTHROID [Concomitant]
  15. NORVASC [Concomitant]
  16. PROTONIX [Concomitant]
  17. ZESTRIL [Concomitant]
  18. CHONDROITIN SULFATE [Concomitant]
  19. SYNTHROID [Concomitant]
  20. LISINOPRIL [Concomitant]
  21. AMLODIPINE [Concomitant]
  22. LEVOXYL [Concomitant]
  23. LEXAPRO [Concomitant]
  24. LIPITOR [Concomitant]
  25. CARDIZEM [Concomitant]

REACTIONS (27)
  - ANAEMIA [None]
  - ANOXIC ENCEPHALOPATHY [None]
  - APNOEA [None]
  - ATRIAL FIBRILLATION [None]
  - CARDIAC ARREST [None]
  - CARDIAC FAILURE CONGESTIVE [None]
  - CARDIO-RESPIRATORY ARREST [None]
  - CHEST PAIN [None]
  - DIZZINESS [None]
  - ECONOMIC PROBLEM [None]
  - EFFUSION [None]
  - EMOTIONAL DISORDER [None]
  - GASTRIC ULCER HAEMORRHAGE [None]
  - HIATUS HERNIA [None]
  - HYPOMAGNESAEMIA [None]
  - HYPOTENSION [None]
  - LEFT VENTRICULAR HYPERTROPHY [None]
  - LOSS OF CONSCIOUSNESS [None]
  - LOSS OF EMPLOYMENT [None]
  - MITRAL VALVE INCOMPETENCE [None]
  - MULTIPLE INJURIES [None]
  - NEUROLOGICAL DECOMPENSATION [None]
  - PAIN [None]
  - SOCIAL PROBLEM [None]
  - SYNCOPE [None]
  - TRICUSPID VALVE INCOMPETENCE [None]
  - URINARY TRACT INFECTION [None]
